FAERS Safety Report 7685157-1 (Version None)
Quarter: 2011Q3

REPORT INFORMATION
  Report Type: 
  Country: None (occurrence: None)
  Receive Date: 20110816
  Receipt Date: 20110812
  Transmission Date: 20111222
  Serious: No
  Sender: FDA-Public Use
  Company Number: US-TEVA-296360USA

PATIENT
  Sex: Female

DRUGS (1)
  1. AZILECT [Suspect]
     Indication: PARKINSON'S DISEASE
     Dosage: 1 MILLIMOL;
     Route: 048
     Dates: start: 20110719

REACTIONS (2)
  - FEELING ABNORMAL [None]
  - TRANCE [None]
